FAERS Safety Report 12597420 (Version 1)
Quarter: 2016Q3

REPORT INFORMATION
  Report Type: Spontaneous
  Country: US (occurrence: None)
  Receive Date: 20160726
  Receipt Date: 20160726
  Transmission Date: 20161109
  Serious: Yes (Hospitalization, Disabling, Other)
  Sender: FDA-Public Use
  Company Number: None

PATIENT
  Age: 82 Year
  Sex: Male

DRUGS (9)
  1. PAROXETINE. [Concomitant]
     Active Substance: PAROXETINE
  2. XARELTO [Concomitant]
     Active Substance: RIVAROXABAN
  3. PREDNISONE. [Concomitant]
     Active Substance: PREDNISONE
  4. PRILOSEC [Concomitant]
     Active Substance: OMEPRAZOLE MAGNESIUM
  5. FLONASE [Concomitant]
     Active Substance: FLUTICASONE PROPIONATE
  6. PAXIL [Concomitant]
     Active Substance: PAROXETINE HYDROCHLORIDE
  7. CALCIUM [Concomitant]
     Active Substance: CALCIUM
  8. SENEKOT [Concomitant]
  9. IMDUR [Suspect]
     Active Substance: ISOSORBIDE MONONITRATE
     Dosage: 100 TABLET(S) IN THE MORNING
     Dates: start: 20160401

REACTIONS (10)
  - Hypoaesthesia [None]
  - Chest pain [None]
  - Headache [None]
  - Head injury [None]
  - Dizziness [None]
  - Fatigue [None]
  - Influenza like illness [None]
  - Fracture [None]
  - Fall [None]
  - Tremor [None]

NARRATIVE: CASE EVENT DATE: 20160408
